FAERS Safety Report 8776966 (Version 1)
Quarter: 2012Q4

REPORT INFORMATION
  Report Type: 
  Country: US (occurrence: US)
  Receive Date: 20120911
  Receipt Date: 20120911
  Transmission Date: 20130627
  Serious: Yes (Hospitalization)
  Sender: FDA-Public Use
  Company Number: US-GLAXOSMITHKLINE-A0992779A

PATIENT
  Age: 71 Year
  Sex: Female

DRUGS (1)
  1. FLOLAN [Suspect]
     Indication: PRODUCT USED FOR UNKNOWN INDICATION
     Dosage: 51.4NGKM Continuous
     Route: 042
     Dates: start: 20030205

REACTIONS (2)
  - Dehydration [Unknown]
  - Syncope [Unknown]
